FAERS Safety Report 16015829 (Version 1)
Quarter: 2019Q1

REPORT INFORMATION
  Report Type: Spontaneous
  Country: FR (occurrence: FR)
  Receive Date: 20190228
  Receipt Date: 20190228
  Transmission Date: 20190418
  Serious: Yes (Death)
  Sender: FDA-Public Use
  Company Number: FR-TEVA-2019-FR-1016489

PATIENT
  Age: 57 Year
  Sex: Female
  Weight: 48 kg

DRUGS (3)
  1. FLUOROURACILE ACCORD 50 MG/ML, SOLUTION POUR PERFUSION [Suspect]
     Active Substance: FLUOROURACIL
     Indication: NEOPLASM MALIGNANT
     Route: 042
     Dates: start: 20181214, end: 20181214
  2. PACLITAXEL. [Suspect]
     Active Substance: PACLITAXEL
     Indication: NEOPLASM MALIGNANT
     Route: 042
     Dates: start: 20181214, end: 20181214
  3. CISPLATINE MYLAN 10 MG/10 ML, SOLUTION ? DILUER POUR PERFUSION [Suspect]
     Active Substance: CISPLATIN
     Indication: NEOPLASM MALIGNANT
     Route: 042
     Dates: start: 20181214, end: 20181214

REACTIONS (4)
  - Distal intestinal obstruction syndrome [Fatal]
  - Septic shock [Fatal]
  - Bone marrow failure [Fatal]
  - Ascites [Fatal]

NARRATIVE: CASE EVENT DATE: 20181220
